FAERS Safety Report 6645253-4 (Version None)
Quarter: 2010Q1

REPORT INFORMATION
  Report Type: 
  Country: None (occurrence: None)
  Receive Date: 20100322
  Receipt Date: 20100312
  Transmission Date: 20100710
  Serious: Yes (Other)
  Sender: FDA-Public Use
  Company Number: PHHY2010US07506

PATIENT
  Sex: Female
  Weight: 158 kg

DRUGS (6)
  1. EXFORGE [Suspect]
     Indication: HYPERTENSION
     Dosage: 10/320 QD
     Route: 048
     Dates: start: 20100205, end: 20100208
  2. TOPROL-XL [Concomitant]
     Dosage: UNK
  3. LASIX [Concomitant]
     Indication: OEDEMA
     Dosage: 20 MG DAILY
     Route: 048
  4. SIMVASTATIN [Concomitant]
     Indication: HYPERLIPIDAEMIA
     Dosage: 40 MG DAILY
  5. GABAPENTIN [Concomitant]
     Dosage: 600 MG, BID
  6. NOVOLOG [Concomitant]
     Indication: DIABETES MELLITUS
     Dosage: AS DIRECTED
     Route: 058

REACTIONS (4)
  - DIZZINESS [None]
  - HEADACHE [None]
  - PALPITATIONS [None]
  - URINE FLOW DECREASED [None]
